FAERS Safety Report 9241356 (Version 1)
Quarter: 2013Q1

REPORT INFORMATION
  Report Type: Spontaneous
  Country: US (occurrence: None)
  Receive Date: 20121120
  Receipt Date: 20121120
  Transmission Date: 20140127
  Serious: No
  Sender: FDA-Public Use
  Company Number: 1000038208

PATIENT
  Age: 88 Year
  Sex: Male

DRUGS (6)
  1. VIIBRYD [Suspect]
     Indication: DEPRESSION
     Route: 048
     Dates: start: 20120824
  2. SINEMET(CARBIDOPA, LEVODOPA)(CARBIDOPA, LEVODOPA) [Concomitant]
  3. NORVASC(AMLODIPINE BESILATE)(AMLODIPINE BESILATE) [Concomitant]
  4. BENICAR(OLMESARTAN MEDOXOMIL)(OLMESARTAN MEDOXOMIL) [Concomitant]
  5. LEVOTHYROXINE(LEVOTHYROXINE SODIUM)(LEVOTHYROXINE SODIUM) [Concomitant]
  6. MULTIVITAMINS(MULTIVITAMINS)(MULTIVITAMINS) [Concomitant]

REACTIONS (3)
  - Feeling jittery [None]
  - Gait disturbance [None]
  - Vision blurred [None]
